FAERS Safety Report 4278012-0 (Version None)
Quarter: 2004Q1

REPORT INFORMATION
  Report Type: 
  Country: None (occurrence: None)
  Receive Date: 20040121
  Receipt Date: 20031204
  Transmission Date: 20041129
  Serious: Yes (Hospitalization)
  Sender: FDA-Public Use
  Company Number: A02200303316

PATIENT
  Sex: Female

DRUGS (3)
  1. ELOXATIN - (OXALIPLATIN) - SOLUTION - 5 MG/ML [Suspect]
     Indication: HEPATIC CANCER METASTATIC
     Dosage: 85 MG/M2 OTHER
     Route: 042
     Dates: start: 20031118, end: 20031118
  2. FLUOROURACIL [Concomitant]
  3. FOLINIC ACID [Concomitant]

REACTIONS (9)
  - COMA [None]
  - DEPRESSED LEVEL OF CONSCIOUSNESS [None]
  - DIARRHOEA [None]
  - MUCOSAL INFLAMMATION [None]
  - NAUSEA [None]
  - PALMAR-PLANTAR ERYTHRODYSAESTHESIA SYNDROME [None]
  - PANCYTOPENIA [None]
  - PYREXIA [None]
  - STREPTOCOCCAL SEPSIS [None]
